FAERS Safety Report 23933826 (Version 1)
Quarter: 2024Q2

REPORT INFORMATION
  Report Type: Report from Study
  Country: US (occurrence: US)
  Receive Date: 20240603
  Receipt Date: 20240603
  Transmission Date: 20240715
  Serious: Yes (Other)
  Sender: FDA-Public Use
  Company Number: US-ABBVIE-5782011

PATIENT
  Age: 52 Year
  Sex: Male

DRUGS (1)
  1. SKYRIZI [Suspect]
     Active Substance: RISANKIZUMAB-RZAA
     Indication: Psoriasis
     Route: 058
     Dates: start: 20210302

REACTIONS (4)
  - Melanocytic naevus [Recovered/Resolved]
  - Fatigue [Unknown]
  - Nervousness [Recovered/Resolved]
  - Acrochordon [Recovered/Resolved]

NARRATIVE: CASE EVENT DATE: 20240529
